FAERS Safety Report 17208574 (Version 3)
Quarter: 2020Q1

REPORT INFORMATION
  Report Type: Spontaneous
  Country: US (occurrence: US)
  Receive Date: 20191227
  Receipt Date: 20200228
  Transmission Date: 20200409
  Serious: No
  Sender: FDA-Public Use
  Company Number: US-PFIZER INC-2019554256

PATIENT
  Age: 65 Year
  Sex: Male
  Weight: 68.27 kg

DRUGS (1)
  1. VIZIMPRO [Suspect]
     Active Substance: DACOMITINIB
     Indication: LUNG NEOPLASM MALIGNANT
     Dosage: 15 MG, UNK

REACTIONS (3)
  - Product dose omission [Unknown]
  - Aphonia [Unknown]
  - Speech disorder [Recovered/Resolved]
